FAERS Safety Report 10682627 (Version 1)
Quarter: 2014Q4

REPORT INFORMATION
  Report Type: Spontaneous
  Country: CN (occurrence: CN)
  Receive Date: 20141230
  Receipt Date: 20141230
  Transmission Date: 20150529
  Serious: Yes (Other)
  Sender: FDA-Public Use
  Company Number: CN-PFIZER INC-2014357676

PATIENT
  Age: 67 Year
  Sex: Female
  Weight: 55 kg

DRUGS (4)
  1. CEFEPIME [Suspect]
     Active Substance: CEFEPIME\CEFEPIME HYDROCHLORIDE
     Indication: INFECTION
     Dosage: 2 G, 3X/DAY
     Route: 041
     Dates: start: 20131026, end: 20131028
  2. SOLU-MEDROL [Suspect]
     Active Substance: METHYLPREDNISOLONE SODIUM SUCCINATE
     Indication: INFECTION
     Dosage: 40 MG, 1X/DAY
     Route: 041
     Dates: start: 20131027, end: 20131031
  3. CEFOPERAZONE SODIUM/SULBACTAM SODIUM [Concomitant]
     Indication: INFECTION
     Dosage: UNK
     Dates: start: 20131022, end: 20131026
  4. CEFOPERAZONE SODIUM/SULBACTAM SODIUM [Concomitant]
     Dosage: UNK
     Dates: start: 20131028

REACTIONS (5)
  - Psychotic disorder [Not Recovered/Not Resolved]
  - Encephalopathy [Not Recovered/Not Resolved]
  - Urinary incontinence [Not Recovered/Not Resolved]
  - Emotional poverty [Not Recovered/Not Resolved]
  - Hyperhidrosis [Not Recovered/Not Resolved]

NARRATIVE: CASE EVENT DATE: 20131027
